FAERS Safety Report 5105811-5 (Version None)
Quarter: 2006Q3

REPORT INFORMATION
  Report Type: 
  Country: None (occurrence: None)
  Receive Date: 20060915
  Receipt Date: 20060905
  Transmission Date: 20061208
  Serious: Yes (Death, Hospitalization)
  Sender: FDA-Public Use
  Company Number: US-JNJFOC-20060902681

PATIENT
  Age: 51 Year
  Sex: Female

DRUGS (6)
  1. ACETAMINOPHEN [Suspect]
  2. ACETAMINOPHEN [Suspect]
     Indication: DRUG USE FOR UNKNOWN INDICATION
  3. RISPERIDONE [Suspect]
     Indication: DRUG USE FOR UNKNOWN INDICATION
  4. BENZTROPINE MESYLATE [Suspect]
     Indication: DRUG USE FOR UNKNOWN INDICATION
  5. HALOPERIDOL [Suspect]
     Indication: DRUG USE FOR UNKNOWN INDICATION
  6. ACTIVATED CHARCOAL/SORBITOL [Suspect]
     Indication: DRUG USE FOR UNKNOWN INDICATION

REACTIONS (11)
  - ACCIDENTAL OVERDOSE [None]
  - ACUTE RESPIRATORY DISTRESS SYNDROME [None]
  - ASPIRATION [None]
  - BLOOD GLUCOSE DECREASED [None]
  - BLOOD PRESSURE DECREASED [None]
  - DRUG TOXICITY [None]
  - HYPERTENSION [None]
  - ILEUS PARALYTIC [None]
  - MENTAL STATUS CHANGES [None]
  - RESPIRATORY RATE INCREASED [None]
  - TACHYCARDIA [None]
